FAERS Safety Report 7641368-2 (Version None)
Quarter: 2011Q3

REPORT INFORMATION
  Report Type: 
  Country: None (occurrence: None)
  Receive Date: 20110728
  Receipt Date: 20110620
  Transmission Date: 20111222
  Serious: No
  Sender: FDA-Public Use
  Company Number: US-AMGEN-USASP2011026383

PATIENT
  Age: 79 Year
  Sex: Female
  Weight: 68.481 kg

DRUGS (5)
  1. ASPIRIN [Concomitant]
     Dosage: 81 MG, QD
  2. NORVASC [Concomitant]
     Dosage: 5 MG, QD
     Route: 048
  3. PROCRIT [Suspect]
     Indication: MYELODYSPLASTIC SYNDROME
     Dosage: 40000 IU, QWK
     Route: 058
     Dates: start: 20110201
  4. COZAAR [Concomitant]
     Dosage: 100 MG, QD
     Route: 048
  5. PAXIL [Concomitant]
     Dosage: 20 MG, QD

REACTIONS (2)
  - HAEMOGLOBIN DECREASED [None]
  - DRUG INEFFECTIVE [None]
